FAERS Safety Report 22039998 (Version 2)
Quarter: 2023Q2

REPORT INFORMATION
  Report Type: Spontaneous
  Country: US (occurrence: US)
  Receive Date: 20230227
  Receipt Date: 20230530
  Transmission Date: 20230722
  Serious: Yes (Other)
  Sender: FDA-Public Use
  Company Number: US-PFIZER INC-PV202300035573

PATIENT
  Age: 65 Year
  Sex: Female

DRUGS (1)
  1. XELJANZ XR [Suspect]
     Active Substance: TOFACITINIB CITRATE
     Indication: Rheumatoid arthritis
     Dosage: 11 MG, DAILY
     Route: 048
     Dates: start: 202211, end: 2023

REACTIONS (7)
  - Stress fracture [Unknown]
  - Upper limb fracture [Unknown]
  - Drug ineffective [Unknown]
  - Impaired healing [Unknown]
  - Diarrhoea [Unknown]
  - Headache [Unknown]
  - Nasopharyngitis [Unknown]
